FAERS Safety Report 25531588 (Version 2)
Quarter: 2025Q3

REPORT INFORMATION
  Report Type: Report from Study
  Country: US (occurrence: US)
  Receive Date: 20250709
  Receipt Date: 20250810
  Transmission Date: 20251021
  Serious: Yes (Other)
  Sender: ALEXION PHARMACEUTICALS
  Company Number: US-AstraZeneca-CH-00903144A

PATIENT
  Sex: Female

DRUGS (2)
  1. ACALABRUTINIB [Suspect]
     Active Substance: ACALABRUTINIB
     Route: 065
  2. BRUKINSA [Concomitant]
     Active Substance: ZANUBRUTINIB
     Route: 065

REACTIONS (8)
  - Hallucination [Unknown]
  - Haematochezia [Unknown]
  - Gastrointestinal hypomotility [Unknown]
  - Faeces discoloured [Unknown]
  - Memory impairment [Unknown]
  - Erythema [Unknown]
  - Impaired healing [Unknown]
  - Scratch [Unknown]
